FAERS Safety Report 8127762-4 (Version None)
Quarter: 2012Q1

REPORT INFORMATION
  Report Type: 
  Country: None (occurrence: None)
  Receive Date: 20120210
  Receipt Date: 20120203
  Transmission Date: 20120608
  Serious: Yes (Hospitalization, Other)
  Sender: FDA-Public Use
  Company Number: US-PFIZER INC-2011043347

PATIENT
  Sex: Female

DRUGS (4)
  1. SERTRALINE [Concomitant]
     Dosage: UNK
  2. EFFEXOR XR [Suspect]
     Dosage: UNK
  3. HYDRALAZINE [Concomitant]
     Dosage: UNK
  4. CELEBREX [Suspect]
     Dosage: UNK

REACTIONS (7)
  - ARTHROPATHY [None]
  - ARTHRITIS [None]
  - ANAPHYLACTIC SHOCK [None]
  - BLOOD PRESSURE ABNORMAL [None]
  - INJURY [None]
  - JOINT DISLOCATION [None]
  - PAIN [None]
